FAERS Safety Report 8198527-2 (Version None)
Quarter: 2012Q1

REPORT INFORMATION
  Report Type: 
  Country: None (occurrence: None)
  Receive Date: 20120309
  Receipt Date: 20120105
  Transmission Date: 20120608
  Serious: Yes (Other)
  Sender: FDA-Public Use
  Company Number: US-AMGEN-USASP2012000856

PATIENT
  Age: 72 Year
  Sex: Female

DRUGS (7)
  1. TRAZODONE HCL [Concomitant]
     Dosage: 1 MG, UNK
  2. CELEBREX [Concomitant]
     Dosage: 1 MG, UNK
  3. PROPRANOLOL [Concomitant]
     Dosage: 2 MG, UNK
  4. PLAQUENIL [Concomitant]
     Dosage: 2 MG, UNK
  5. LIPITOR [Concomitant]
     Dosage: 1 MG, UNK
  6. PROLIA [Suspect]
     Indication: OSTEOPOROSIS POSTMENOPAUSAL
     Dosage: 60 MG, Q6MO
     Dates: start: 20111013
  7. CYMBALTA [Concomitant]
     Dosage: 1 MG, UNK

REACTIONS (1)
  - OSTEONECROSIS OF JAW [None]
